FAERS Safety Report 17091693 (Version 1)
Quarter: 2019Q4

REPORT INFORMATION
  Report Type: Report from Study
  Country: US (occurrence: US)
  Receive Date: 20191129
  Receipt Date: 20191129
  Transmission Date: 20200122
  Serious: Yes (Other)
  Sender: FDA-Public Use
  Company Number: US-GLAXOSMITHKLINE-US2019AMR212669

PATIENT
  Sex: Female

DRUGS (1)
  1. BELIMUMAB [Suspect]
     Active Substance: BELIMUMAB
     Indication: SYSTEMIC LUPUS ERYTHEMATOSUS
     Dosage: UNK
     Route: 065

REACTIONS (11)
  - Swelling [Unknown]
  - Musculoskeletal disorder [Unknown]
  - Mucocutaneous disorder [Unknown]
  - Fatigue [Unknown]
  - Arthritis [Unknown]
  - Arthralgia [Unknown]
  - Arthropathy [Unknown]
  - Seizure [Unknown]
  - Rash [Unknown]
  - Skin disorder [Unknown]
  - Musculoskeletal stiffness [Unknown]
